FAERS Safety Report 5828982-1 (Version None)
Quarter: 2008Q3

REPORT INFORMATION
  Report Type: 
  Country: None (occurrence: None)
  Receive Date: 20080731
  Receipt Date: 20080722
  Transmission Date: 20090109
  Serious: Yes (Other)
  Sender: FDA-Public Use
  Company Number: PHHY2007BR00503

PATIENT
  Age: 42 Year
  Sex: Female
  Weight: 52 kg

DRUGS (4)
  1. DIOVAN [Suspect]
     Indication: HYPERTENSION
     Dosage: 80 MG, QD
     Route: 048
     Dates: start: 19950101
  2. DIOVAN [Suspect]
     Dosage: 80 MG, QD
     Route: 048
  3. DIOVAN HCT [Suspect]
     Indication: HYPERTENSION
     Dosage: 80/12.5 MG DAILY
     Route: 048
  4. PAROXETINE HCL [Concomitant]
     Dosage: 30 MG, QD
     Route: 048

REACTIONS (20)
  - ARTHRALGIA [None]
  - ASTHENIA [None]
  - BLOOD PRESSURE FLUCTUATION [None]
  - BLOOD TESTOSTERONE DECREASED [None]
  - HYPERHIDROSIS [None]
  - HYPERTENSION [None]
  - HYPOTENSION [None]
  - LISTLESS [None]
  - LYMPHADENOPATHY [None]
  - MALAISE [None]
  - MIGRAINE [None]
  - MYALGIA [None]
  - MYOPIA [None]
  - NECK MASS [None]
  - PERIPHERAL COLDNESS [None]
  - POLYURIA [None]
  - STRESS [None]
  - SURGERY [None]
  - SWELLING [None]
  - VISION BLURRED [None]
